FAERS Safety Report 8472243-1 (Version None)
Quarter: 2012Q2

REPORT INFORMATION
  Report Type: 
  Country: None (occurrence: None)
  Receive Date: 20120627
  Receipt Date: 20111011
  Transmission Date: 20120825
  Serious: No
  Sender: FDA-Public Use
  Company Number: US-MYLANLABS-2011S1015549

PATIENT
  Age: 35 Year
  Sex: Female

DRUGS (3)
  1. IBUPROFEN (ADVIL) [Concomitant]
  2. METHOTREXATE [Suspect]
     Indication: PSORIATIC ARTHROPATHY
     Route: 048
     Dates: start: 20110101
  3. ENBREL [Concomitant]
     Indication: ARTHRITIS
     Route: 030
     Dates: start: 20110101

REACTIONS (1)
  - COELIAC DISEASE [None]
